FAERS Safety Report 15088374 (Version 1)
Quarter: 2018Q3

REPORT INFORMATION
  Report Type: Spontaneous
  Country: FR (occurrence: FR)
  Receive Date: 20180629
  Receipt Date: 20180629
  Transmission Date: 20181010
  Serious: Yes (Hospitalization)
  Sender: FDA-Public Use
  Company Number: FR-TEVA-2018-FR-914754

PATIENT
  Age: 80 Year
  Sex: Male
  Weight: 67 kg

DRUGS (19)
  1. LIPTRUZET [Suspect]
     Active Substance: ATORVASTATIN CALCIUM\EZETIMIBE
     Indication: CORONARY ARTERY DISEASE
     Dosage: 1 DOSAGE FORMS DAILY;
     Route: 048
     Dates: end: 20180417
  2. PERMIXON 160 MG, G?LULE [Suspect]
     Active Substance: HERBALS\SAW PALMETTO
     Indication: DYSURIA
     Dosage: 1 DOSAGE FORMS DAILY;
     Route: 048
  3. ZYMAD [Concomitant]
     Active Substance: CHOLECALCIFEROL
  4. SERETIDE [Concomitant]
     Active Substance: FLUTICASONE PROPIONATE\SALMETEROL XINAFOATE
  5. NATISPRAY [Concomitant]
     Active Substance: NITROGLYCERIN
  6. COZAAR [Suspect]
     Active Substance: LOSARTAN POTASSIUM
     Indication: HYPERTENSION
     Route: 048
  7. CORDARONE [Suspect]
     Active Substance: AMIODARONE HYDROCHLORIDE
     Indication: VENTRICULAR ARRHYTHMIA
     Dosage: 1 DOSAGE FORMS DAILY;
     Route: 048
     Dates: start: 20170501, end: 20180319
  8. ZANIDIP 20 MG, COMPRIM? PELLICUL? [Suspect]
     Active Substance: LERCANIDIPINE HYDROCHLORIDE
     Indication: HYPERTENSION
     Route: 048
     Dates: end: 20180417
  9. FUROSEMIDE. [Concomitant]
     Active Substance: FUROSEMIDE
  10. INSPRA [Concomitant]
     Active Substance: EPLERENONE
  11. METFORMIN [Suspect]
     Active Substance: METFORMIN HYDROCHLORIDE
     Indication: TYPE 2 DIABETES MELLITUS
     Dosage: 1000 MILLIGRAM DAILY;
     Route: 048
  12. BRILIQUE 90 MG, COMPRIM? PELLICUL? [Suspect]
     Active Substance: TICAGRELOR
     Indication: CORONARY ARTERY DISEASE
     Dosage: 1 DOSAGE FORMS DAILY;
     Route: 048
     Dates: end: 20180517
  13. TRINIPATCH [Concomitant]
     Active Substance: NITROGLYCERIN
  14. KARDEGIC [Concomitant]
     Active Substance: ASPIRIN DL-LYSINE
  15. HYPERIUM 1 MG, COMPRIM? [Concomitant]
     Active Substance: RILMENIDINE PHOSPHATE
  16. PLAVIX [Concomitant]
     Active Substance: CLOPIDOGREL BISULFATE
  17. GLIBENCLAMIDE [Concomitant]
     Active Substance: GLYBURIDE
  18. LANTUS [Concomitant]
     Active Substance: INSULIN GLARGINE
  19. BISOPROLOL (FUMARATE ACIDE DE) [Concomitant]
     Active Substance: BISOPROLOL FUMARATE

REACTIONS (1)
  - Interstitial lung disease [Recovering/Resolving]

NARRATIVE: CASE EVENT DATE: 20180223
